FAERS Safety Report 11747543 (Version 3)
Quarter: 2016Q1

REPORT INFORMATION
  Report Type: Spontaneous
  Country: BR (occurrence: BR)
  Receive Date: 20151117
  Receipt Date: 20160128
  Transmission Date: 20160525
  Serious: Yes (Death, Life-Threatening)
  Sender: FDA-Public Use
  Company Number: BR-ELI_LILLY_AND_COMPANY-BR201511004532

PATIENT
  Age: 49 Year
  Sex: Male

DRUGS (1)
  1. CIALIS [Suspect]
     Active Substance: TADALAFIL
     Indication: PROSTATIC DISORDER
     Dosage: UNK, UNKNOWN
     Route: 048
     Dates: start: 201501

REACTIONS (5)
  - Cardiac arrest [Recovered/Resolved]
  - Feeling abnormal [Unknown]
  - Fatigue [Unknown]
  - Dyspnoea [Unknown]
  - Cardiac arrest [Fatal]

NARRATIVE: CASE EVENT DATE: 20150427
